FAERS Safety Report 13746302 (Version 1)
Quarter: 2017Q3

REPORT INFORMATION
  Report Type: Spontaneous
  Country: US (occurrence: US)
  Receive Date: 20170712
  Receipt Date: 20170712
  Transmission Date: 20171127
  Serious: Yes (Hospitalization)
  Sender: FDA-Public Use
  Company Number: None

PATIENT
  Age: 80 Year
  Sex: Male

DRUGS (1)
  1. WARFARIN [Suspect]
     Active Substance: WARFARIN
     Route: 048
     Dates: start: 20170424, end: 20170709

REACTIONS (6)
  - Mass [None]
  - Fall [None]
  - Haematoma [None]
  - Rib fracture [None]
  - International normalised ratio increased [None]
  - Contusion [None]

NARRATIVE: CASE EVENT DATE: 20170705
